FAERS Safety Report 11418774 (Version 6)
Quarter: 2016Q3

REPORT INFORMATION
  Report Type: Spontaneous
  Country: US (occurrence: US)
  Receive Date: 20150826
  Receipt Date: 20160809
  Transmission Date: 20161109
  Serious: Yes (Hospitalization, Other)
  Sender: FDA-Public Use
  Company Number: US-AMGEN-USASP2015084587

PATIENT
  Age: 1 Year
  Sex: Female
  Weight: 2.55 kg

DRUGS (2)
  1. CULTURELLE FOR KIDS [Concomitant]
     Indication: PROBIOTIC THERAPY
     Dosage: 1 PKG, QD
     Dates: start: 20160212
  2. ENBREL [Suspect]
     Active Substance: ETANERCEPT
     Indication: EXPOSURE DURING PREGNANCY
     Dosage: 50 UNK, QWK
     Route: 064
     Dates: start: 200105

REACTIONS (17)
  - Micrognathia [Unknown]
  - Surgery [Unknown]
  - Pneumonia [Unknown]
  - Jaw disorder [Unknown]
  - Hypotonia [Unknown]
  - Developmental delay [Unknown]
  - Ear infection [Unknown]
  - Jejunostomy [Unknown]
  - Gastrooesophageal reflux disease [Unknown]
  - Gastrointestinal tube insertion [Unknown]
  - Malaise [Unknown]
  - Tracheal mass [Unknown]
  - Gastrostomy [Unknown]
  - Microstomia [Unknown]
  - Tracheostomy [Unknown]
  - Upper airway obstruction [Unknown]
  - Premature baby [Recovered/Resolved]

NARRATIVE: CASE EVENT DATE: 201410
